FAERS Safety Report 14020231 (Version 1)
Quarter: 2017Q3

REPORT INFORMATION
  Report Type: Spontaneous
  Country: IN (occurrence: IN)
  Receive Date: 20170928
  Receipt Date: 20170928
  Transmission Date: 20171128
  Serious: Yes (Hospitalization)
  Sender: FDA-Public Use
  Company Number: IN-PFIZER INC-2013335854

PATIENT
  Age: 6 Year
  Sex: Female

DRUGS (1)
  1. MEROPENEM. [Suspect]
     Active Substance: MEROPENEM
     Indication: RESPIRATORY TRACT INFECTION
     Dosage: 60 MG/KG/DAY (DIVIDED 8 HRLY)
     Route: 042

REACTIONS (2)
  - Hypokalaemia [Recovered/Resolved]
  - Metabolic alkalosis [Recovered/Resolved]
